FAERS Safety Report 6269604-8 (Version None)
Quarter: 2009Q3

REPORT INFORMATION
  Report Type: 
  Country: None (occurrence: None)
  Receive Date: 20090714
  Receipt Date: 20090701
  Transmission Date: 20100115
  Serious: Yes (Other)
  Sender: FDA-Public Use
  Company Number: GXKR2009US07553

PATIENT
  Age: 11 Year
  Sex: Male

DRUGS (1)
  1. SOMATROPIN (NGX) (SOMATROPIN) UNKNOWN [Suspect]
     Indication: BODY HEIGHT BELOW NORMAL

REACTIONS (6)
  - GROWTH RETARDATION [None]
  - HYPERTENSION [None]
  - INSULIN RESISTANCE [None]
  - PITUITARY TUMOUR BENIGN [None]
  - PITUITARY-DEPENDENT CUSHING'S SYNDROME [None]
  - WEIGHT INCREASED [None]
